FAERS Safety Report 9465443 (Version 2)
Quarter: 2013Q3

REPORT INFORMATION
  Report Type: Spontaneous
  Country: US (occurrence: US)
  Receive Date: 20130820
  Receipt Date: 20130911
  Transmission Date: 20140515
  Serious: No
  Sender: FDA-Public Use
  Company Number: US-B.I. PHARMACEUTICALS,INC./RIDGEFIELD-2013-BI-24476BP

PATIENT
  Sex: Female
  Weight: 51 kg

DRUGS (5)
  1. SPIRIVA [Suspect]
     Indication: BRONCHITIS CHRONIC
     Dosage: 18 MCG
     Route: 055
     Dates: start: 2011
  2. SPIRIVA [Suspect]
     Indication: CHRONIC OBSTRUCTIVE PULMONARY DISEASE
  3. FLOVENT [Concomitant]
     Indication: BRONCHITIS CHRONIC
     Dosage: 200 MCG
     Route: 055
  4. AZITHROMYCIN [Concomitant]
     Route: 048
  5. ACTONEL [Concomitant]

REACTIONS (4)
  - Cataract [Not Recovered/Not Resolved]
  - Vision blurred [Not Recovered/Not Resolved]
  - Migraine with aura [Not Recovered/Not Resolved]
  - Visual acuity reduced [Not Recovered/Not Resolved]
